FAERS Safety Report 7067538-2 (Version None)
Quarter: 2010Q4

REPORT INFORMATION
  Report Type: 
  Country: None (occurrence: None)
  Receive Date: 20101028
  Receipt Date: 20101015
  Transmission Date: 20110411
  Serious: Yes (Congenital Anomaly)
  Sender: FDA-Public Use
  Company Number: US-RANBAXY-2010US-38846

PATIENT

DRUGS (1)
  1. ISOTRETINOIN [Suspect]
     Indication: PRODUCT USED FOR UNKNOWN INDICATION
     Dosage: UNK, UNK
     Route: 064

REACTIONS (10)
  - CHOLESTEATOMA [None]
  - CONDUCTIVE DEAFNESS [None]
  - DEVELOPMENTAL DELAY [None]
  - DRUG EXPOSURE DURING PREGNANCY [None]
  - EAR CANAL STENOSIS [None]
  - EXTERNAL AUDITORY CANAL ATRESIA [None]
  - HYPOTONIA [None]
  - MICROTIA [None]
  - RETINAL ANOMALY CONGENITAL [None]
  - VENTRICULAR SEPTAL DEFECT [None]
